FAERS Safety Report 17097337 (Version 2)
Quarter: 2019Q4

REPORT INFORMATION
  Report Type: Spontaneous
  Country: US (occurrence: US)
  Receive Date: 20191202
  Receipt Date: 20191224
  Transmission Date: 20200122
  Serious: No
  Sender: FDA-Public Use
  Company Number: US-AMGEN-USASP2019198861

PATIENT
  Age: 82 Year
  Sex: Female

DRUGS (7)
  1. AMOXICILLIN. [Concomitant]
     Active Substance: AMOXICILLIN
     Dosage: 500 MILLIGRAM, CAPSULE
  2. OXYCODONE/APAP [OXYCODONE;PARACETAMOL] [Concomitant]
     Dosage: 10-325 MILLIGRAM, TABLET
  3. REPATHA [Suspect]
     Active Substance: EVOLOCUMAB
     Indication: ATRIAL FIBRILLATION
     Dosage: 140 MILLIGRAM, Q2WK
     Route: 058
  4. CEPHALEXIN [CEFALEXIN] [Concomitant]
     Active Substance: CEPHALEXIN
     Dosage: 500 MILLIGRAM, CAPSULE
  5. GLIMEPIRIDE. [Concomitant]
     Active Substance: GLIMEPIRIDE
     Dosage: 4 MILLIGRAM, TABLET
  6. LEVOTHYROXINE. [Concomitant]
     Active Substance: LEVOTHYROXINE
     Dosage: 25 MICROGRAM, TABLET
  7. GABAPENTIN. [Concomitant]
     Active Substance: GABAPENTIN
     Dosage: 600 MILLIGRAM, TABLET

REACTIONS (1)
  - Product dose omission [Unknown]

NARRATIVE: CASE EVENT DATE: 20191124
